FAERS Safety Report 7689437-5 (Version None)
Quarter: 2011Q3

REPORT INFORMATION
  Report Type: 
  Country: None (occurrence: None)
  Receive Date: 20110817
  Receipt Date: 20110809
  Transmission Date: 20111222
  Serious: Yes (Other)
  Sender: FDA-Public Use
  Company Number: GB-TEVA-294539ISR

PATIENT
  Age: 61 Year
  Sex: Female

DRUGS (2)
  1. IFOSFAMIDE [Suspect]
     Indication: SYNOVIAL SARCOMA
     Dosage: 4800 MG/DAY (3 G/M2/DAY)
  2. DOXORUBICIN HCL [Suspect]

REACTIONS (1)
  - HEPATIC FAILURE [None]
